FAERS Safety Report 5952858-2 (Version None)
Quarter: 2008Q4

REPORT INFORMATION
  Report Type: 
  Country: None (occurrence: None)
  Receive Date: 20081114
  Receipt Date: 20081113
  Transmission Date: 20090506
  Serious: Yes (Hospitalization)
  Sender: FDA-Public Use
  Company Number: FR-BRISTOL-MYERS SQUIBB COMPANY-14346118

PATIENT
  Age: 66 Year
  Sex: Female

DRUGS (5)
  1. ABILIFY [Suspect]
     Indication: SCHIZOPHRENIA
     Dosage: 04-JUL-2008 - UNK-SEP-2008:20 MG UNK-SEP-2008 - 23-SEP-2008:25 MG
     Route: 048
     Dates: start: 20080704, end: 20080923
  2. DEPAMIDE [Concomitant]
     Route: 048
  3. ZOLPIDEM [Concomitant]
     Route: 048
  4. EFFEXOR [Concomitant]
     Route: 048
  5. SERESTA [Concomitant]
     Route: 048

REACTIONS (1)
  - NEUROLEPTIC MALIGNANT SYNDROME [None]
